FAERS Safety Report 4644499-4 (Version None)
Quarter: 2005Q2

REPORT INFORMATION
  Report Type: 
  Country: None (occurrence: None)
  Receive Date: 20050425
  Receipt Date: 20050425
  Transmission Date: 20051028
  Serious: No
  Sender: FDA-Public Use
  Company Number: None

PATIENT
  Age: 28 Year
  Sex: Female
  Weight: 33.1126 kg

DRUGS (1)
  1. PENTASA  250 MG CAPSULES  SHIRE US, INC. [Suspect]
     Indication: IRRITABLE BOWEL SYNDROME
     Dosage: 750 MG  WITH MEALS ORAL
     Route: 048

REACTIONS (2)
  - CIRCUMSTANCE OR INFORMATION CAPABLE OF LEADING TO MEDICATION ERROR [None]
  - MEDICATION ERROR [None]
